FAERS Safety Report 9133524 (Version 1)
Quarter: 2013Q1

REPORT INFORMATION
  Report Type: Spontaneous
  Country: US (occurrence: US)
  Receive Date: 20130124
  Receipt Date: 20130124
  Transmission Date: 20140127
  Serious: Yes (Other)
  Sender: FDA-Public Use
  Company Number: US-BRACCO-008470

PATIENT
  Age: 33 Year
  Sex: Male
  Weight: 125 kg

DRUGS (3)
  1. MULTIHANCE [Suspect]
     Indication: ANGIOGRAM
     Route: 042
     Dates: start: 20120821, end: 20120821
  2. MULTIHANCE [Suspect]
     Indication: DIZZINESS
     Route: 042
     Dates: start: 20120821, end: 20120821
  3. MULTIHANCE [Suspect]
     Indication: SYNCOPE
     Route: 042
     Dates: start: 20120821, end: 20120821

REACTIONS (1)
  - Anaphylactoid reaction [Recovering/Resolving]
